FAERS Safety Report 9783965 (Version 2)
Quarter: 2014Q1

REPORT INFORMATION
  Report Type: Spontaneous
  Country: CH (occurrence: CH)
  Receive Date: 20131226
  Receipt Date: 20140313
  Transmission Date: 20141002
  Serious: Yes (Hospitalization, Other)
  Sender: FDA-Public Use
  Company Number: CH-PFIZER INC-2013363817

PATIENT
  Age: 84 Year
  Sex: Female

DRUGS (16)
  1. SORTIS [Suspect]
     Indication: PROPHYLAXIS
     Dosage: 20 MG, DAILY
     Dates: start: 201303
  2. PERINDOPRIL [Suspect]
     Indication: HYPERTENSION
     Dosage: 2 MG, DAILY
     Route: 048
     Dates: start: 201304
  3. XARELTO [Suspect]
     Indication: ATRIAL FIBRILLATION
     Dosage: 20 MG, DAILY
     Route: 048
     Dates: start: 201304
  4. XARELTO [Suspect]
     Indication: ATRIAL FLUTTER
  5. TOREM [Suspect]
     Indication: ESSENTIAL HYPERTENSION
     Dosage: 10 MG 5X/DAY OR 4X/DAY
     Route: 048
     Dates: start: 201304
  6. LASIX [Suspect]
     Indication: ESSENTIAL HYPERTENSION
     Dosage: 1 DF, AS NEEDED
     Route: 048
     Dates: start: 201303, end: 201304
  7. BILOL [Concomitant]
     Dosage: 4 MG, DAILY
     Dates: start: 201304
  8. ZALDIAR [Concomitant]
     Dosage: 1 DF, 3X/DAY
     Dates: start: 201304, end: 201311
  9. KCL [Concomitant]
     Dosage: UNK
     Dates: start: 201304
  10. MAGNESIUM SULFATE [Concomitant]
     Dosage: UNK
  11. PREDNISON [Concomitant]
     Dosage: UNK
  12. ALLOPUR [Concomitant]
     Dosage: UNK
  13. FENTANYL [Concomitant]
     Dosage: UNK
  14. PRAMIPEXOLE DIHYDROCHLORIDE [Concomitant]
     Dosage: UNK
  15. CALCIMAGON-D3 [Concomitant]
     Dosage: UNK
  16. MOVICOL [Concomitant]
     Dosage: UNK

REACTIONS (5)
  - Cerebral infarction [Unknown]
  - Thrombocytopenia [Unknown]
  - Fall [Unknown]
  - Urinary tract infection [Unknown]
  - Cardiac failure [Unknown]
